FAERS Safety Report 8327776-5 (Version None)
Quarter: 2012Q2

REPORT INFORMATION
  Report Type: 
  Country: None (occurrence: None)
  Receive Date: 20120502
  Receipt Date: 20120427
  Transmission Date: 20120825
  Serious: No
  Sender: FDA-Public Use
  Company Number: US-PFIZER INC-2012075961

PATIENT
  Sex: Female
  Weight: 63.492 kg

DRUGS (6)
  1. CHANTIX [Suspect]
     Indication: SMOKING CESSATION THERAPY
     Dosage: 0.5MG DAILY
     Route: 048
     Dates: start: 20110301, end: 20110101
  2. XANAX [Concomitant]
     Indication: ANXIETY
  3. XANAX [Concomitant]
     Indication: PANIC ATTACK
     Dosage: 1 MG, 3X/DAY
  4. VENLAFAXINE [Concomitant]
     Indication: PANIC ATTACK
     Dosage: 75 MG, 2X/DAY
  5. VENLAFAXINE [Concomitant]
     Indication: ANXIETY
  6. OMEPRAZOLE [Concomitant]
     Indication: IRRITABLE BOWEL SYNDROME
     Dosage: 20MG DAILY

REACTIONS (1)
  - TOBACCO USER [None]
